FAERS Safety Report 12781687 (Version 1)
Quarter: 2016Q3

REPORT INFORMATION
  Report Type: Spontaneous
  Country: CA (occurrence: CA)
  Receive Date: 20160926
  Receipt Date: 20160926
  Transmission Date: 20161109
  Serious: Yes (Hospitalization)
  Sender: FDA-Public Use
  Company Number: CA-ACTELION-A-NJ2016-142872

PATIENT
  Age: 77 Year
  Sex: Female

DRUGS (5)
  1. OMEPRAZOLE. [Concomitant]
     Active Substance: OMEPRAZOLE
  2. MULTIVITAMIN [Concomitant]
     Active Substance: VITAMINS
  3. RIOCIGUAT [Concomitant]
     Active Substance: RIOCIGUAT
  4. CALCITROL [Concomitant]
     Active Substance: CALCITRIOL
  5. OPSUMIT [Suspect]
     Active Substance: MACITENTAN
     Indication: PULMONARY HYPERTENSION
     Dosage: 10 MG, QD
     Route: 048

REACTIONS (2)
  - Constipation [Unknown]
  - Dyspnoea [Unknown]
